FAERS Safety Report 5142663-1 (Version None)
Quarter: 2006Q4

REPORT INFORMATION
  Report Type: 
  Country: None (occurrence: None)
  Receive Date: 20061027
  Receipt Date: 20061024
  Transmission Date: 20070319
  Serious: Yes (Hospitalization)
  Sender: FDA-Public Use
  Company Number: 2006BI006431

PATIENT
  Age: 54 Year
  Sex: Female

DRUGS (1)
  1. AVONEX [Suspect]
     Indication: MULTIPLE SCLEROSIS
     Dates: start: 20050101

REACTIONS (6)
  - APPENDICITIS PERFORATED [None]
  - ATELECTASIS [None]
  - ATRIAL FIBRILLATION [None]
  - COLLAPSE OF LUNG [None]
  - PROCEDURAL COMPLICATION [None]
  - PULMONARY CONGESTION [None]
